FAERS Safety Report 25241466 (Version 1)
Quarter: 2025Q2

REPORT INFORMATION
  Report Type: Spontaneous
  Country: FR (occurrence: FR)
  Receive Date: 20250425
  Receipt Date: 20250425
  Transmission Date: 20250716
  Serious: Yes (Life-Threatening)
  Sender: AMGEN
  Company Number: FR-AMGEN-FRASP2025081089

PATIENT
  Age: 44 Year
  Sex: Female
  Weight: 80 kg

DRUGS (16)
  1. MVASI [Suspect]
     Active Substance: BEVACIZUMAB-AWWB
     Indication: Ovarian cancer
     Dosage: 1200 MILLIGRAM, QD (25 MG/ML, C1 15MG/KG)
     Route: 040
     Dates: start: 20250310, end: 20250310
  2. MVASI [Suspect]
     Active Substance: BEVACIZUMAB-AWWB
     Dosage: (ZERO MILLIGRAMS), QD (C2 15 MG/KG OR 1190 MG INITIALLY PLANNED, NOT ADMINISTERED DUE TO ANAPHYLACTI
     Route: 040
     Dates: start: 20250331, end: 20250331
  3. PACLITAXEL [Suspect]
     Active Substance: PACLITAXEL
     Indication: Ovarian cancer
     Dosage: 325 MILLIGRAM, QD (6 MG/MLC1 175MG/M2)
     Route: 040
     Dates: start: 20250310, end: 20250310
  4. PACLITAXEL [Suspect]
     Active Substance: PACLITAXEL
     Dosage: 12 MILLIGRAM, QD (C2 175MG/M2 OR 325MG INITIALLY PRESCRIBED BUT 12MG RECEIVED WHEN ANAPHYLACTIC SHOC
     Route: 040
     Dates: start: 20250331, end: 20250331
  5. CARBOPLATIN [Suspect]
     Active Substance: CARBOPLATIN
     Indication: Ovarian cancer
     Dosage: 710 MILLIGRAM, QD (10 MG/ML, C1 AUC 4.5)
     Route: 040
     Dates: start: 20250310, end: 20250310
  6. CARBOPLATIN [Suspect]
     Active Substance: CARBOPLATIN
     Dosage: (ZERO MILLIGRAMS), QD (C2 AUC 6,810 MG INITIALLY PLANNED, NOT ADMINISTERED DUE TO ANAPHYLACTIC SHOCK
     Route: 040
     Dates: start: 20250310, end: 20250310
  7. POLARAMINE [Concomitant]
     Active Substance: DEXCHLORPHENIRAMINE MALEATE
     Indication: Chemotherapy side effect prophylaxis
     Dosage: 5 MILLIGRAM, QD (5 MG/1 ML)
     Route: 040
     Dates: start: 20250310, end: 20250310
  8. POLARAMINE [Concomitant]
     Active Substance: DEXCHLORPHENIRAMINE MALEATE
     Dosage: 5 MILLIGRAM, QD (5 MG/1 ML)
     Route: 040
     Dates: start: 20250331, end: 20250331
  9. ONDANSETRON [Concomitant]
     Active Substance: ONDANSETRON
     Indication: Chemotherapy side effect prophylaxis
     Dosage: 8 MILLIGRAM, QD (2 MG/ML)
     Route: 040
     Dates: start: 20250310, end: 20250310
  10. ONDANSETRON [Concomitant]
     Active Substance: ONDANSETRON
     Dosage: 8 MILLIGRAM, QD (2 MG/ML)
     Route: 040
     Dates: start: 20250331, end: 20250331
  11. METHYLPREDNISOLONE [Concomitant]
     Active Substance: METHYLPREDNISOLONE
     Indication: Chemotherapy side effect prophylaxis
     Dosage: 120 MILLIGRAM, QD
     Route: 040
     Dates: start: 20250310, end: 20250310
  12. METHYLPREDNISOLONE [Concomitant]
     Active Substance: METHYLPREDNISOLONE
     Dosage: 120 MILLIGRAM, QD
     Route: 040
     Dates: start: 20250331, end: 20250331
  13. DEXTROSE MONOHYDRATE\POTASSIUM CHLORIDE\SODIUM CHLORIDE [Concomitant]
     Active Substance: DEXTROSE MONOHYDRATE\POTASSIUM CHLORIDE\SODIUM CHLORIDE
     Indication: Chemotherapy side effect prophylaxis
     Dosage: 1000 MILLILITER, QD
     Route: 040
     Dates: start: 20250310, end: 20250310
  14. DEXTROSE MONOHYDRATE\POTASSIUM CHLORIDE\SODIUM CHLORIDE [Concomitant]
     Active Substance: DEXTROSE MONOHYDRATE\POTASSIUM CHLORIDE\SODIUM CHLORIDE
     Dosage: 1000 MILLILITER, QD
     Route: 040
     Dates: start: 20250331, end: 20250331
  15. CIMETIDINE [Concomitant]
     Active Substance: CIMETIDINE
     Indication: Chemotherapy side effect prophylaxis
     Dosage: 400 MILLIGRAM, QD (200 MG TABLET)
     Route: 040
     Dates: start: 20250310, end: 20250310
  16. CIMETIDINE [Concomitant]
     Active Substance: CIMETIDINE
     Dosage: 400 MILLIGRAM, QD (200 MG TABLET)
     Route: 040
     Dates: start: 20250331, end: 20250331

REACTIONS (1)
  - Anaphylactic shock [Recovered/Resolved]

NARRATIVE: CASE EVENT DATE: 20250331
